FAERS Safety Report 7299230-3 (Version None)
Quarter: 2011Q1

REPORT INFORMATION
  Report Type: 
  Country: None (occurrence: None)
  Receive Date: 20110217
  Receipt Date: 20110209
  Transmission Date: 20110831
  Serious: Yes (Disabling)
  Sender: FDA-Public Use
  Company Number: JP-MERCK-1012USA04077

PATIENT
  Age: 68 Year
  Sex: Female

DRUGS (4)
  1. WARFARIN [Concomitant]
     Dosage: DIVIDED DOSE FREQUENCY U
     Route: 048
  2. PREDONINE [Concomitant]
     Indication: VASCULITIS
     Route: 065
  3. FOSAMAX [Suspect]
     Indication: OSTEOPOROSIS
     Route: 048
     Dates: start: 20021101, end: 20090722
  4. INSULIN [Concomitant]
     Indication: DIABETES MELLITUS
     Route: 058

REACTIONS (1)
  - OSTEOMYELITIS [None]
